FAERS Safety Report 11109780 (Version 1)
Quarter: 2015Q2

REPORT INFORMATION
  Report Type: Spontaneous
  Country: US (occurrence: None)
  Receive Date: 20150512
  Receipt Date: 20150512
  Transmission Date: 20150821
  Serious: Yes (Hospitalization, Other)
  Sender: FDA-Public Use
  Company Number: None

PATIENT
  Age: 49 Year
  Sex: Female
  Weight: 53.52 kg

DRUGS (2)
  1. CITALOPRAM HYDROBROMIDE. [Suspect]
     Active Substance: CITALOPRAM HYDROBROMIDE
     Indication: DEPRESSION
     Dosage: 20 MG (10ML)
     Route: 048
     Dates: start: 20141222, end: 20150428
  2. PANTOPRAZOLE SODIUM [Concomitant]

REACTIONS (5)
  - Dizziness [None]
  - Headache [None]
  - Hyponatraemia [None]
  - Nausea [None]
  - Diarrhoea [None]

NARRATIVE: CASE EVENT DATE: 20150428
